FAERS Safety Report 21233449 (Version 1)
Quarter: 2022Q3

REPORT INFORMATION
  Report Type: Spontaneous
  Country: CN (occurrence: CN)
  Receive Date: 20220819
  Receipt Date: 20220819
  Transmission Date: 20221026
  Serious: Yes (Hospitalization)
  Sender: FDA-Public Use
  Company Number: CN-Merck Healthcare KGaA-9343100

PATIENT
  Age: 63 Year
  Sex: Male
  Weight: 64 kg

DRUGS (5)
  1. ERBITUX [Suspect]
     Active Substance: CETUXIMAB
     Indication: Colorectal cancer metastatic
     Dosage: 800 MG, UNK (0.9% SODIUM CHLORIDE INJECTION 500 ML INTRAVENOUS DRIP ONCE)
     Route: 041
     Dates: start: 20220708, end: 20220708
  2. FLUOROURACIL [Suspect]
     Active Substance: FLUOROURACIL
     Indication: Colorectal cancer metastatic
     Dosage: .675 G, UNK
     Route: 042
     Dates: start: 20220708, end: 20220708
  3. FLUOROURACIL [Suspect]
     Active Substance: FLUOROURACIL
     Dosage: 2 G, UNK
     Route: 042
     Dates: start: 20220708, end: 20220709
  4. LEUCOVORIN CALCIUM [Suspect]
     Active Substance: LEUCOVORIN CALCIUM
     Indication: Colorectal cancer metastatic
     Dosage: .66 G, UNK (0.9% SODIUM CHLORIDE INJECTION 250 ML INTRAVENOUS DRIP ONCE0
     Route: 041
     Dates: start: 20220708, end: 20220708
  5. IRINOTECAN HYDROCHLORIDE [Suspect]
     Active Substance: IRINOTECAN HYDROCHLORIDE
     Indication: Colorectal cancer metastatic
     Dosage: .3 G, UNK (0.9% SODIUM CHLORIDE INJECTION 250 ML INTRAVENOUS DRIP ONCE)
     Route: 041
     Dates: start: 20220708, end: 20220708

REACTIONS (1)
  - Granulocyte count decreased [Recovering/Resolving]

NARRATIVE: CASE EVENT DATE: 20220724
